FAERS Safety Report 6256180-9 (Version None)
Quarter: 2009Q3

REPORT INFORMATION
  Report Type: 
  Country: None (occurrence: None)
  Receive Date: 20090706
  Receipt Date: 20090629
  Transmission Date: 20100115
  Serious: Yes (Death, Hospitalization, Other)
  Sender: FDA-Public Use
  Company Number: PHHY2009BR26301

PATIENT
  Sex: Female

DRUGS (2)
  1. FORADIL [Suspect]
     Indication: DYSPNOEA
     Dosage: UNK
     Dates: start: 20070101, end: 20070101
  2. CLONAZEPAM [Concomitant]

REACTIONS (5)
  - DEMENTIA ALZHEIMER'S TYPE [None]
  - ESCHAR [None]
  - KIDNEY INFECTION [None]
  - MEMORY IMPAIRMENT [None]
  - MULTI-ORGAN FAILURE [None]
